FAERS Safety Report 9321126 (Version 2)
Quarter: 2013Q3

REPORT INFORMATION
  Report Type: Spontaneous
  Country: ID (occurrence: ID)
  Receive Date: 20130531
  Receipt Date: 20130827
  Transmission Date: 20140515
  Serious: Yes (Hospitalization)
  Sender: FDA-Public Use
  Company Number: ID-ABBOTT-13X-079-1096754-00

PATIENT
  Age: 12 Year
  Sex: Male

DRUGS (4)
  1. DEPAKOTE [Suspect]
     Indication: CONVULSION
     Dates: start: 201303
  2. RIFAMPICIN [Interacting]
     Indication: TUBERCULOSIS
     Route: 048
     Dates: start: 201304
  3. INH [Interacting]
     Indication: TUBERCULOSIS
     Route: 048
     Dates: start: 201304
  4. PZA [Interacting]
     Indication: TUBERCULOSIS
     Route: 048
     Dates: start: 201304

REACTIONS (5)
  - Drug interaction [Unknown]
  - Ocular icterus [Unknown]
  - Yellow skin [Unknown]
  - Hepatic function abnormal [Unknown]
  - Asthenia [Unknown]
